FAERS Safety Report 6895879-8 (Version None)
Quarter: 2010Q3

REPORT INFORMATION
  Report Type: 
  Country: None (occurrence: None)
  Receive Date: 20100802
  Receipt Date: 20100716
  Transmission Date: 20110219
  Serious: Yes (Other)
  Sender: FDA-Public Use
  Company Number: US-BAYER-201016881NA

PATIENT
  Age: 29 Year
  Sex: Female
  Weight: 54 kg

DRUGS (1)
  1. YAZ [Suspect]
     Indication: ORAL CONTRACEPTION
     Route: 048
     Dates: start: 20060801, end: 20090201

REACTIONS (4)
  - DEEP VEIN THROMBOSIS [None]
  - NECK PAIN [None]
  - VARICOSE VEIN [None]
  - VASODILATATION [None]
